FAERS Safety Report 6610261-6 (Version None)
Quarter: 2010Q1

REPORT INFORMATION
  Report Type: 
  Country: None (occurrence: None)
  Receive Date: 20100302
  Receipt Date: 20100223
  Transmission Date: 20100710
  Serious: Yes (Death)
  Sender: FDA-Public Use
  Company Number: ES-JNJFOC-20100210334

PATIENT
  Age: 28 Year
  Sex: Male

DRUGS (1)
  1. INFLIXIMAB [Suspect]
     Indication: INFLAMMATORY BOWEL DISEASE
     Route: 042

REACTIONS (4)
  - HYPOVOLAEMIC SHOCK [None]
  - POST PROCEDURAL HAEMATOMA [None]
  - POST PROCEDURAL SEPSIS [None]
  - SEPTIC SHOCK [None]
